FAERS Safety Report 4497509-1 (Version None)
Quarter: 2004Q4

REPORT INFORMATION
  Report Type: 
  Country: None (occurrence: None)
  Receive Date: 20041104
  Receipt Date: 20041101
  Transmission Date: 20050328
  Serious: Yes (Other)
  Sender: FDA-Public Use
  Company Number: 200410581BYL

PATIENT
  Age: 62 Year
  Sex: Male
  Weight: 85 kg

DRUGS (3)
  1. ASPIRIN [Suspect]
     Indication: ANTIPLATELET THERAPY
     Dosage: 100 MG, QD, ORAL
     Route: 048
     Dates: start: 20040820, end: 20041025
  2. EXCEGRAN    (ZONISAMIDE) [Suspect]
     Indication: CONVULSION
     Dosage: 100 MG, BID,  ORAL
     Route: 048
     Dates: start: 20040820, end: 20041025
  3. PAMILCON [Concomitant]

REACTIONS (2)
  - FATIGUE [None]
  - WHITE BLOOD CELL COUNT DECREASED [None]
